FAERS Safety Report 10084264 (Version 2)
Quarter: 2014Q2

REPORT INFORMATION
  Report Type: Report from Study
  Country: NL (occurrence: NL)
  Receive Date: 20140417
  Receipt Date: 20140424
  Transmission Date: 20141212
  Serious: Yes (Hospitalization)
  Sender: FDA-Public Use
  Company Number: NL-AMGEN-NLDCT2014026516

PATIENT
  Age: 43 Year
  Sex: 0

DRUGS (3)
  1. PANITUMUMAB [Suspect]
     Indication: COLON CANCER METASTATIC
     Dosage: 480 MG, UNK
     Route: 065
     Dates: start: 20110518
  2. SIMVASTATIN [Concomitant]
     Dosage: UNK
     Dates: start: 20110509
  3. MINOCYCLINE [Concomitant]
     Dosage: 100 MG, QD

REACTIONS (2)
  - Nausea [Recovered/Resolved]
  - Haematemesis [Recovered/Resolved]
